FAERS Safety Report 22377800 (Version 1)
Quarter: 2023Q2

REPORT INFORMATION
  Report Type: Spontaneous
  Country: HU (occurrence: None)
  Receive Date: 20230529
  Receipt Date: 20230529
  Transmission Date: 20230721
  Serious: Yes (Other)
  Sender: FDA-Public Use
  Company Number: HU-Orion Corporation ORION PHARMA-TREX2022-0166

PATIENT
  Age: 65 Year
  Sex: Female

DRUGS (8)
  1. METHOTREXATE [Suspect]
     Active Substance: METHOTREXATE
     Indication: Rheumatoid arthritis
     Dates: start: 2015, end: 2019
  2. METHOTREXATE [Suspect]
     Active Substance: METHOTREXATE
     Dates: end: 2019
  3. METHOTREXATE [Suspect]
     Active Substance: METHOTREXATE
     Dates: start: 201910
  4. METHOTREXATE [Suspect]
     Active Substance: METHOTREXATE
     Dosage: RECEIVE ECP THERAPY SUPPLEMENTED BY METHOTREXATE
     Dates: start: 202104
  5. INTERFERON ALFA-2A [Suspect]
     Active Substance: INTERFERON ALFA-2A
     Indication: Product used for unknown indication
     Dates: start: 2018, end: 2019
  6. APREPITANT [Concomitant]
     Active Substance: APREPITANT
  7. BRENTUXIMAB VEDOTIN [Concomitant]
     Active Substance: BRENTUXIMAB VEDOTIN
     Indication: Cutaneous T-cell lymphoma
     Dosage: 16-CYCLES
     Dates: start: 202001, end: 202103
  8. METHYLPREDNISOLONE [Concomitant]
     Active Substance: METHYLPREDNISOLONE

REACTIONS (3)
  - Cutaneous T-cell lymphoma [Unknown]
  - Gamma-glutamyltransferase increased [Recovered/Resolved]
  - Pruritus [Unknown]

NARRATIVE: CASE EVENT DATE: 20190101
